FAERS Safety Report 9723206 (Version 2)
Quarter: 2015Q1

REPORT INFORMATION
  Report Type: Spontaneous
  Country: US (occurrence: US)
  Receive Date: 20131202
  Receipt Date: 20150304
  Transmission Date: 20150721
  Serious: Yes (Other)
  Sender: FDA-Public Use
  Company Number: US-ELI_LILLY_AND_COMPANY-US201311007045

PATIENT
  Sex: Male

DRUGS (12)
  1. ASPIRIN                            /00002701/ [Concomitant]
     Active Substance: ASPIRIN
  2. HUMALOG [Suspect]
     Active Substance: INSULIN LISPRO
     Dosage: 4 U, QD
     Route: 065
     Dates: start: 2005
  3. NEXIUM [Concomitant]
     Active Substance: ESOMEPRAZOLE MAGNESIUM
  4. TRADJENTA [Concomitant]
     Active Substance: LINAGLIPTIN
  5. WARFARIN [Concomitant]
     Active Substance: WARFARIN
  6. LINZESS [Concomitant]
     Active Substance: LINACLOTIDE
  7. COLACE [Concomitant]
     Active Substance: DOCUSATE SODIUM
  8. XANAX [Concomitant]
     Active Substance: ALPRAZOLAM
  9. HUMALOG [Suspect]
     Active Substance: INSULIN LISPRO
     Indication: TYPE 2 DIABETES MELLITUS
     Dosage: 3 U, BID
     Route: 058
     Dates: start: 2005
  10. LANTUS [Concomitant]
     Active Substance: INSULIN GLARGINE
  11. LEVODOPA [Concomitant]
     Active Substance: LEVODOPA
  12. SYNTHROID [Concomitant]
     Active Substance: LEVOTHYROXINE SODIUM

REACTIONS (12)
  - Blindness [Unknown]
  - Cerebrovascular accident [Recovered/Resolved with Sequelae]
  - Blindness [Not Recovered/Not Resolved]
  - Eye haemorrhage [Unknown]
  - Blood glucose increased [Unknown]
  - Weight decreased [Unknown]
  - Abdominal pain [Unknown]
  - Parkinson^s disease [Unknown]
  - Dizziness [Unknown]
  - Fall [Unknown]
  - Laceration [Unknown]
  - Haemorrhage [Unknown]

NARRATIVE: CASE EVENT DATE: 2014
